FAERS Safety Report 7345992-6 (Version None)
Quarter: 2011Q1

REPORT INFORMATION
  Report Type: 
  Country: None (occurrence: None)
  Receive Date: 20110308
  Receipt Date: 20110308
  Transmission Date: 20110831
  Serious: Yes (Other)
  Sender: FDA-Public Use
  Company Number: None

PATIENT
  Age: 57 Year
  Sex: Female
  Weight: 73.4827 kg

DRUGS (1)
  1. REQUIP [Suspect]
     Indication: PARKINSON'S DISEASE
     Dosage: 8MG 3X/DAY PO
     Route: 048
     Dates: start: 20070301, end: 20101015

REACTIONS (5)
  - DISTURBANCE IN SEXUAL AROUSAL [None]
  - APHAGIA [None]
  - DEPRESSION [None]
  - IMPAIRED WORK ABILITY [None]
  - WEIGHT DECREASED [None]
